FAERS Safety Report 8105668-4 (Version None)
Quarter: 2012Q1

REPORT INFORMATION
  Report Type: 
  Country: None (occurrence: None)
  Receive Date: 20120201
  Receipt Date: 20120127
  Transmission Date: 20120608
  Serious: Yes (Other)
  Sender: FDA-Public Use
  Company Number: US-ALLERGAN-1116819US

PATIENT
  Age: 82 Year
  Sex: Female
  Weight: 58.957 kg

DRUGS (10)
  1. PRED FORTE [Suspect]
     Indication: ULCERATIVE KERATITIS
     Dosage: 1 GTT, QID
     Route: 047
     Dates: start: 20100801
  2. LASIX [Concomitant]
     Indication: RHEUMATOID ARTHRITIS
     Dosage: 10 MG, QID
     Route: 048
  3. PREDNISONE TAB [Suspect]
     Indication: RHEUMATOID ARTHRITIS
     Dosage: 40 MG/DAY DOWN TO 10 MG
     Route: 048
     Dates: start: 20100801
  4. BROMDAY [Concomitant]
  5. CYTOXAN [Concomitant]
     Indication: RHEUMATOID ARTHRITIS
     Dosage: 500 MG, Q MONTH
     Dates: start: 20110901
  6. METHALAZONE [Concomitant]
     Dosage: 5 MG, UNK
  7. CYTOXAN [Concomitant]
     Indication: ULCERATIVE KERATITIS
  8. LEVOTHYROXINE SODIUM [Concomitant]
     Dosage: .75 A?G, UNK
  9. DUREZOL [Concomitant]
     Route: 047
  10. PREDNISONE TAB [Suspect]
     Indication: ULCERATIVE KERATITIS

REACTIONS (5)
  - CATARACT [None]
  - VISUAL ACUITY REDUCED [None]
  - SWELLING FACE [None]
  - SWELLING [None]
  - SECRETION DISCHARGE [None]
